FAERS Safety Report 5560513-6 (Version None)
Quarter: 2007Q4

REPORT INFORMATION
  Report Type: 
  Country: None (occurrence: None)
  Receive Date: 20071215
  Receipt Date: 20071109
  Transmission Date: 20080405
  Serious: No
  Sender: FDA-Public Use
  Company Number: US-ABBOTT-07P-163-0424860-00

PATIENT
  Sex: Female
  Weight: 78.542 kg

DRUGS (5)
  1. HUMIRA [Suspect]
     Indication: RHEUMATOID ARTHRITIS
     Route: 058
     Dates: start: 20050501, end: 20050801
  2. HUMIRA [Suspect]
     Route: 058
     Dates: start: 20070301, end: 20070801
  3. HUMIRA [Suspect]
     Dates: start: 20070801, end: 20071001
  4. HUMIRA [Suspect]
     Indication: RHEUMATOID ARTHRITIS
     Dates: start: 20071001
  5. SERETIDE [Concomitant]
     Indication: ASTHMA
     Dosage: 250/50
     Route: 055

REACTIONS (2)
  - DRUG INEFFECTIVE [None]
  - INJECTION SITE PAIN [None]
